FAERS Safety Report 6166926-6 (Version None)
Quarter: 2009Q2

REPORT INFORMATION
  Report Type: 
  Country: None (occurrence: None)
  Receive Date: 20090424
  Receipt Date: 20090417
  Transmission Date: 20091009
  Serious: Yes (Other)
  Sender: FDA-Public Use
  Company Number: US-BAYER-200916381NA

PATIENT
  Sex: Female

DRUGS (8)
  1. CIPROFLOXACIN HCL [Suspect]
     Indication: NEPHROLITHIASIS
     Dates: start: 20050314
  2. CIPROFLOXACIN HCL [Suspect]
     Dates: start: 20051201
  3. CIPROFLOXACIN HCL [Suspect]
     Dates: start: 20060701
  4. CIPROFLOXACIN HCL [Suspect]
     Dates: start: 20070201
  5. CIPROFLOXACIN HCL [Suspect]
     Dates: start: 20070501
  6. CIPROFLOXACIN HCL [Suspect]
     Dates: start: 20070901
  7. CIPROFLOXACIN HCL [Suspect]
     Dates: start: 20080201
  8. CIPROFLOXACIN HCL [Suspect]
     Dates: start: 20080501

REACTIONS (4)
  - ANKLE FRACTURE [None]
  - ARTHRALGIA [None]
  - LIGAMENT RUPTURE [None]
  - TENDONITIS [None]
